FAERS Safety Report 7689806-3 (Version None)
Quarter: 2011Q3

REPORT INFORMATION
  Report Type: 
  Country: None (occurrence: None)
  Receive Date: 20110818
  Receipt Date: 20110804
  Transmission Date: 20111222
  Serious: Yes (Hospitalization)
  Sender: FDA-Public Use
  Company Number: US-BRISTOL-MYERS SQUIBB COMPANY-15945553

PATIENT
  Age: 57 Year
  Sex: Female

DRUGS (2)
  1. ARIPIPRAZOLE [Suspect]
     Indication: SCHIZOPHRENIA
     Dosage: STARTED ON 16-NOV-2010.NO OF DOSE RECEIVED-5.
     Route: 030
     Dates: start: 20110310
  2. CLONAZEPAM [Concomitant]
     Dates: start: 20101118

REACTIONS (1)
  - SCHIZOPHRENIA [None]
